FAERS Safety Report 14577766 (Version 1)
Quarter: 2018Q1

REPORT INFORMATION
  Report Type: Spontaneous
  Country: US (occurrence: US)
  Receive Date: 20180227
  Receipt Date: 20180227
  Transmission Date: 20180509
  Serious: No
  Sender: FDA-Public Use
  Company Number: US-GLAXOSMITHKLINE-US2018GSK032392

PATIENT
  Sex: Male

DRUGS (2)
  1. VENTOLIN HFA [Suspect]
     Active Substance: ALBUTEROL SULFATE
     Indication: ASTHMA
  2. FLOVENT [Suspect]
     Active Substance: FLUTICASONE PROPIONATE
     Indication: ASTHMA

REACTIONS (2)
  - Device malfunction [Unknown]
  - Wrong technique in device usage process [Unknown]
